FAERS Safety Report 6991674-X (Version None)
Quarter: 2010Q3

REPORT INFORMATION
  Report Type: 
  Country: None (occurrence: None)
  Receive Date: 20100917
  Receipt Date: 20100906
  Transmission Date: 20110219
  Serious: Yes (Other)
  Sender: FDA-Public Use
  Company Number: PHHY2010MX60783

PATIENT
  Sex: Female

DRUGS (4)
  1. ZOLEDRONIC [Suspect]
     Dosage: 5MG/100ML PER YEAR
     Route: 042
     Dates: start: 20091024
  2. ZOLEDRONIC [Suspect]
     Dosage: 5MG/100 PER YEAR
     Route: 042
     Dates: start: 20100713
  3. FOSAMAX [Concomitant]
  4. CITRACAL + D [Concomitant]

REACTIONS (3)
  - DIARRHOEA [None]
  - PELVIC FRACTURE [None]
  - PRURITUS [None]
